FAERS Safety Report 11793068 (Version 1)
Quarter: 2015Q4

REPORT INFORMATION
  Report Type: Spontaneous
  Country: GB (occurrence: GB)
  Receive Date: 20151202
  Receipt Date: 20151202
  Transmission Date: 20160305
  Serious: Yes (Other)
  Sender: FDA-Public Use
  Company Number: GB-WATSON-2015-25569

PATIENT
  Age: 61 Year
  Sex: Female
  Weight: 62.59 kg

DRUGS (2)
  1. PROGESTERONE. [Concomitant]
     Active Substance: PROGESTERONE
     Indication: PRODUCT USED FOR UNKNOWN INDICATION
     Dosage: UNK, UNKNOWN
     Route: 065
  2. TAMOXIFEN (UNKNOWN) [Suspect]
     Active Substance: TAMOXIFEN
     Indication: BREAST CANCER
     Dosage: 20 MG, UNKNOWN
     Route: 048
     Dates: start: 20110730, end: 20150305

REACTIONS (7)
  - Hot flush [Recovered/Resolved]
  - Fluid retention [Recovered/Resolved]
  - Biopsy endometrium abnormal [Recovered/Resolved with Sequelae]
  - Headache [Recovered/Resolved]
  - Nausea [Recovered/Resolved]
  - Vaginal haemorrhage [Unknown]
  - Endometrial hyperplasia [Recovered/Resolved with Sequelae]

NARRATIVE: CASE EVENT DATE: 20110730
